FAERS Safety Report 5214060-1 (Version None)
Quarter: 2007Q1

REPORT INFORMATION
  Report Type: 
  Country: None (occurrence: None)
  Receive Date: 20070122
  Receipt Date: 20070108
  Transmission Date: 20070707
  Serious: Yes (Hospitalization)
  Sender: FDA-Public Use
  Company Number: DE-BRISTOL-MYERS SQUIBB COMPANY-13637640

PATIENT
  Sex: Female

DRUGS (1)
  1. CAPOZIDE [Suspect]

REACTIONS (1)
  - BRAIN OEDEMA [None]
